FAERS Safety Report 7021006-2 (Version None)
Quarter: 2010Q3

REPORT INFORMATION
  Report Type: 
  Country: None (occurrence: None)
  Receive Date: 20100929
  Receipt Date: 20100920
  Transmission Date: 20110219
  Serious: Yes (Other)
  Sender: FDA-Public Use
  Company Number: US-PFIZER INC-2010119955

PATIENT
  Sex: Male
  Weight: 69 kg

DRUGS (7)
  1. CHANTIX [Suspect]
     Indication: SMOKING CESSATION THERAPY
     Dosage: 0.5 MG, DAILY
     Route: 048
     Dates: start: 20100920
  2. VICODIN [Interacting]
     Indication: BACK PAIN
     Dosage: 5 MG, 3X/DAY
  3. KLONOPIN [Interacting]
     Indication: BACK PAIN
     Dosage: 0.5 MG, 3X/DAY
  4. PRISTIQ [Concomitant]
     Indication: DEPRESSION
     Dosage: 50 MG, DAILY
     Route: 048
     Dates: start: 20100501
  5. PRISTIQ [Concomitant]
     Dosage: 100 MG, 1X/DAY
     Route: 048
     Dates: start: 20100817
  6. MOBIC [Concomitant]
     Dosage: 15 MG, DAILY
  7. BUSPAR [Concomitant]
     Dosage: 0.4 MG, UNK

REACTIONS (2)
  - DRUG INTERACTION [None]
  - PAIN [None]
